FAERS Safety Report 10222321 (Version 4)
Quarter: 2021Q1

REPORT INFORMATION
  Report Type: Spontaneous
  Country: BR (occurrence: BR)
  Receive Date: 20140606
  Receipt Date: 20210310
  Transmission Date: 20210419
  Serious: Yes (Death, Other)
  Sender: FDA-Public Use
  Company Number: BR-PFIZER INC-2014152433

PATIENT
  Age: 83 Year
  Sex: Female

DRUGS (4)
  1. OLMETEC HCT [Suspect]
     Active Substance: HYDROCHLOROTHIAZIDE\OLMESARTAN MEDOXOMIL
     Dosage: [OLMESARTAN MEDOXIMIL 40 MG]/ [HYDROCHLOROTHIAZIDE 12.5 MG], UNKUNK
  2. OLMETEC HCT [Suspect]
     Active Substance: HYDROCHLOROTHIAZIDE\OLMESARTAN MEDOXOMIL
     Indication: HYPERTENSION
     Dosage: [OLMESARTAN MEDOXIMIL 20 MG]/ [HYDROCHLOROTHIAZIDE 12.5 MG], UNK
     Route: 048
     Dates: start: 20110217
  3. NORVASC [Suspect]
     Active Substance: AMLODIPINE BESYLATE
     Indication: HYPERTENSION
     Dosage: 5 MG, UNK
     Route: 048
     Dates: start: 20110217
  4. OLMETEC [Suspect]
     Active Substance: OLMESARTAN MEDOXOMIL

REACTIONS (3)
  - Respiratory disorder [Fatal]
  - Dementia Alzheimer^s type [Fatal]
  - Pneumonia [Fatal]
